FAERS Safety Report 17900023 (Version 1)
Quarter: 2020Q2

REPORT INFORMATION
  Report Type: Spontaneous
  Country: US (occurrence: US)
  Receive Date: 20200615
  Receipt Date: 20200615
  Transmission Date: 20200714
  Serious: Yes (Hospitalization)
  Sender: FDA-Public Use
  Company Number: None

PATIENT
  Sex: Female

DRUGS (37)
  1. AZELASTINE. [Concomitant]
     Active Substance: AZELASTINE HYDROCHLORIDE
  2. BUSPIRONE [Concomitant]
     Active Substance: BUSPIRONE HYDROCHLORIDE
  3. NITROGLYCRN [Concomitant]
  4. OMEPRAZOLE. [Concomitant]
     Active Substance: OMEPRAZOLE
  5. AZELAIC ACID. [Concomitant]
     Active Substance: AZELAIC ACID
  6. DOXYCYCL HYC [Concomitant]
  7. JANUMET XR [Concomitant]
     Active Substance: METFORMIN HYDROCHLORIDE\SITAGLIPTIN PHOSPHATE
  8. LOSARTAN POT LUMIGAN [Concomitant]
  9. METRONIDAZOL [Concomitant]
     Active Substance: METRONIDAZOLE
  10. ROPINIROLE. [Concomitant]
     Active Substance: ROPINIROLE
  11. ROSUVASTATIN. [Concomitant]
     Active Substance: ROSUVASTATIN
  12. CYCNOCOBALAM [Concomitant]
  13. CYCLOBENZAPR [Concomitant]
     Active Substance: CYCLOBENZAPRINE
  14. DYMISTA [Concomitant]
     Active Substance: AZELASTINE HYDROCHLORIDE\FLUTICASONE PROPIONATE
  15. FLORASTOR [Concomitant]
     Active Substance: SACCHAROMYCES CEREVISIAE
  16. FOLBEE [Concomitant]
     Active Substance: CYANOCOBALAMIN\FOLIC ACID\PYRIDOXINE HYDROCHLORIDE
  17. POT CHLORIDE [Concomitant]
     Active Substance: POTASSIUM CHLORIDE
  18. DIGOXIN. [Concomitant]
     Active Substance: DIGOXIN
  19. DILTIAZEM ER [Concomitant]
     Active Substance: DILTIAZEM
  20. MAG OXIDE [Concomitant]
     Active Substance: MAGNESIUM OXIDE
  21. MATZIM LA [Concomitant]
     Active Substance: DILTIAZEM HYDROCHLORIDE
  22. ELIQUIS [Concomitant]
     Active Substance: APIXABAN
  23. METOPROL TAR [Concomitant]
  24. PONARIS [Concomitant]
  25. RHOPRESSA [Concomitant]
     Active Substance: NETARSUDIL MESYLATE
  26. ESBRIET [Suspect]
     Active Substance: PIRFENIDONE
     Indication: IDIOPATHIC PULMONARY FIBROSIS
     Route: 048
     Dates: start: 20181005
  27. AZE;/FLUTIC [Concomitant]
  28. BUMETANIDE. [Concomitant]
     Active Substance: BUMETANIDE
  29. BENZONATATE. [Concomitant]
     Active Substance: BENZONATATE
  30. DILTIAZEM. [Concomitant]
     Active Substance: DILTIAZEM
  31. TRIAMCINOLON CRE [Concomitant]
  32. LUMIGAN [Concomitant]
     Active Substance: BIMATOPROST
  33. FLUCONAZOLE. [Concomitant]
     Active Substance: FLUCONAZOLE
  34. KLOR-CON M [Concomitant]
     Active Substance: POTASSIUM CHLORIDE
  35. ONDANSETRON [Concomitant]
     Active Substance: ONDANSETRON
  36. POT CL MICRO [Concomitant]
  37. URSODIOL. [Concomitant]
     Active Substance: URSODIOL

REACTIONS (2)
  - Therapy interrupted [None]
  - Calculus bladder [None]
